FAERS Safety Report 25765803 (Version 1)
Quarter: 2025Q3

REPORT INFORMATION
  Report Type: Spontaneous
  Country: US (occurrence: US)
  Receive Date: 20250905
  Receipt Date: 20250905
  Transmission Date: 20251020
  Serious: No
  Sender: DOMPE FARMACEUTICI
  Company Number: US-FARMAPROD-202407-2465

PATIENT
  Age: 76 Year
  Sex: Female

DRUGS (25)
  1. OXERVATE [Suspect]
     Active Substance: CENEGERMIN-BKBJ
     Indication: Neurotrophic keratopathy
     Route: 047
     Dates: start: 20240625
  2. OXERVATE [Suspect]
     Active Substance: CENEGERMIN-BKBJ
  3. MELATONIN [Concomitant]
     Active Substance: MELATONIN
  4. NATTOKINASE [Concomitant]
     Active Substance: NATTOKINASE
  5. SELENIUM [Concomitant]
     Active Substance: SELENIUM
  6. HERBALS\TURMERIC [Concomitant]
     Active Substance: HERBALS\TURMERIC
  7. QUERCETIN [Concomitant]
     Active Substance: QUERCETIN
  8. COPPER [Concomitant]
     Active Substance: COPPER
  9. ZINC [Concomitant]
     Active Substance: ZINC
  10. VITAMIN B12 [Concomitant]
     Active Substance: CYANOCOBALAMIN
  11. LYSINE [Concomitant]
     Active Substance: LYSINE
  12. DIETARY SUPPLEMENT\HERBALS\MILK THISTLE [Concomitant]
     Active Substance: MILK THISTLE
  13. CRANBERRY [Concomitant]
     Active Substance: CRANBERRY
  14. VITAMIN D3 [Concomitant]
     Active Substance: CHOLECALCIFEROL
  15. VITAMIN D3 [Concomitant]
     Active Substance: CHOLECALCIFEROL
  16. VITAMIN C [Concomitant]
     Active Substance: ASCORBIC ACID
  17. VITAMIN C [Concomitant]
     Active Substance: ASCORBIC ACID
  18. LORAZEPAM [Concomitant]
     Active Substance: LORAZEPAM
  19. ASPIRIN [Concomitant]
     Active Substance: ASPIRIN
  20. ACETAMINOPHEN\HYDROCODONE [Concomitant]
     Active Substance: ACETAMINOPHEN\HYDROCODONE
  21. GINKGO [Concomitant]
     Active Substance: GINKGO
  22. MAGNESIUM OXIDE [Concomitant]
     Active Substance: MAGNESIUM OXIDE
  23. IRISH MOSS [Concomitant]
  24. GRAVIOLA [Concomitant]
  25. COENZYME Q10 [Concomitant]
     Active Substance: DIETARY SUPPLEMENT\UBIDECARENONE

REACTIONS (4)
  - Eye pain [Recovering/Resolving]
  - Eye inflammation [Recovering/Resolving]
  - Dyspepsia [Recovering/Resolving]
  - Headache [Recovering/Resolving]

NARRATIVE: CASE EVENT DATE: 20240625
